FAERS Safety Report 7003309-0 (Version None)
Quarter: 2010Q3

REPORT INFORMATION
  Report Type: 
  Country: None (occurrence: None)
  Receive Date: 20100920
  Receipt Date: 20100908
  Transmission Date: 20110219
  Serious: Yes (Hospitalization, Other)
  Sender: FDA-Public Use
  Company Number: US-PFIZER INC-2010093802

PATIENT
  Age: 80 Year
  Sex: Female

DRUGS (17)
  1. SERTRALINE HYDROCHLORIDE [Suspect]
     Indication: DEPRESSION
     Dosage: 50 MG, UNK
  2. SERTRALINE HYDROCHLORIDE [Suspect]
     Dosage: 200 MG, TITRATED OVER 10 DAYS TO MAINTENANCE
  3. LEVETIRACETAM [Suspect]
     Indication: GRAND MAL CONVULSION
     Dosage: 1000 MG, 2X/DAY
  4. LEVETIRACETAM [Suspect]
     Dosage: TITRATED DOWNWARD UNTIL DISCONTINUATION
  5. AMIODARONE [Suspect]
     Dosage: 400 MG, 2X/DAY
     Route: 048
  6. AMIODARONE [Suspect]
     Dosage: 200 MG, DECREASED TO MAINTENANCE DOSE
  7. RISPERIDONE [Concomitant]
     Dosage: 0.5 MG, 2X/DAY
  8. METOPROLOL [Concomitant]
     Dosage: 25 MG, 2X/DAY
  9. FUROSEMIDE [Concomitant]
     Dosage: 20 MG, UNK
  10. PHENYTOIN [Concomitant]
     Indication: CONVULSION
     Dosage: 1000 MG, UNK
     Route: 042
  11. PHENYTOIN [Concomitant]
     Dosage: 200 MG, UNK
     Route: 048
  12. TELMISARTAN [Concomitant]
     Indication: HYPERTENSION
     Dosage: 80 MG, UNK
  13. LEVOTHYROXINE [Concomitant]
     Indication: HYPOTHYROIDISM
     Dosage: 0.1 MG
     Route: 048
  14. LEVOTHYROXINE [Concomitant]
     Dosage: 0.075 MG
     Route: 048
  15. PREGABALIN [Concomitant]
     Indication: GRAND MAL CONVULSION
     Dosage: 300MG, TITRATED OVER 2 WEEKS
  16. WARFARIN [Concomitant]
     Dosage: 5 MG, UNK
  17. AMLODIPINE BESILATE [Concomitant]
     Indication: HYPERTENSION
     Dosage: 10 MG, UNK

REACTIONS (10)
  - ATRIAL FIBRILLATION [None]
  - CARDIAC FAILURE CONGESTIVE [None]
  - COGNITIVE DISORDER [None]
  - CONFUSIONAL STATE [None]
  - DECREASED APPETITE [None]
  - DELIRIUM [None]
  - DRUG INEFFECTIVE [None]
  - FATIGUE [None]
  - IRRITABILITY [None]
  - PARANOIA [None]
